FAERS Safety Report 21558193 (Version 2)
Quarter: 2022Q4

REPORT INFORMATION
  Report Type: Other
  Country: US (occurrence: None)
  Receive Date: 20221107
  Receipt Date: 20221108
  Transmission Date: 20230113
  Serious: No
  Sender: FDA-Public Use
  Company Number: US-ROCHE-3212663

PATIENT
  Age: 58 Year
  Sex: Female
  Weight: 80.358 kg

DRUGS (4)
  1. OCREVUS [Suspect]
     Active Substance: OCRELIZUMAB
     Indication: Multiple sclerosis
     Route: 042
  2. AMPYRA [Concomitant]
     Active Substance: DALFAMPRIDINE
  3. GABAPENTIN [Concomitant]
     Active Substance: GABAPENTIN
  4. ADDERALL [Concomitant]
     Active Substance: AMPHETAMINE ASPARTATE\AMPHETAMINE SULFATE\DEXTROAMPHETAMINE SACCHARATE\DEXTROAMPHETAMINE SULFATE

REACTIONS (6)
  - Vision blurred [Unknown]
  - Fall [Unknown]
  - Sensory loss [Unknown]
  - Hypoaesthesia [Not Recovered/Not Resolved]
  - Pollakiuria [Unknown]
  - Diplopia [Unknown]
